FAERS Safety Report 9861237 (Version 1)
Quarter: 2014Q1

REPORT INFORMATION
  Report Type: Spontaneous
  Country: US (occurrence: US)
  Receive Date: 20140202
  Receipt Date: 20140202
  Transmission Date: 20141002
  Serious: No
  Sender: FDA-Public Use
  Company Number: US-ALLERGAN-1304087US

PATIENT
  Age: 52 Year
  Sex: Female

DRUGS (4)
  1. BOTOX [Suspect]
     Indication: THORACIC OUTLET SYNDROME
     Dosage: 150 UNITS, SINGLE
     Route: 030
     Dates: start: 20130307, end: 20130307
  2. PRIMERA PATCH [Concomitant]
     Indication: PRODUCT USED FOR UNKNOWN INDICATION
     Dosage: UNK
     Route: 061
     Dates: start: 2012
  3. PROMETRIUM [Concomitant]
     Indication: PRODUCT USED FOR UNKNOWN INDICATION
     Dosage: UNK
     Route: 048
     Dates: start: 2012
  4. LEVOTHYROXINE [Concomitant]
     Indication: HYPOTHYROIDISM
     Dosage: UNK
     Route: 048
     Dates: start: 2012

REACTIONS (7)
  - Off label use [Unknown]
  - Pain [Unknown]
  - Muscle tightness [Unknown]
  - Neck pain [Unknown]
  - Headache [Unknown]
  - Injection site pain [Unknown]
  - Hypoaesthesia [Unknown]
